FAERS Safety Report 6279977-8 (Version None)
Quarter: 2009Q3

REPORT INFORMATION
  Report Type: 
  Country: None (occurrence: None)
  Receive Date: 20090723
  Receipt Date: 20090505
  Transmission Date: 20100115
  Serious: No
  Sender: FDA-Public Use
  Company Number: US-AMGEN-KDL345979

PATIENT
  Sex: Female
  Weight: 69.9 kg

DRUGS (7)
  1. PROCRIT [Suspect]
     Indication: ANAEMIA OF MALIGNANT DISEASE
     Dates: start: 20090401
  2. TAXOL [Concomitant]
  3. CARBOPLATIN [Concomitant]
  4. MORPHINE [Concomitant]
  5. UNSPECIFIED MEDICATION [Concomitant]
  6. ZOFRAN [Concomitant]
  7. FENTANYL-100 [Concomitant]

REACTIONS (1)
  - PLATELET COUNT DECREASED [None]
